FAERS Safety Report 24849986 (Version 2)
Quarter: 2025Q1

REPORT INFORMATION
  Report Type: Spontaneous
  Country: US (occurrence: US)
  Receive Date: 20250116
  Receipt Date: 20250117
  Transmission Date: 20250408
  Serious: Yes (Hospitalization, Other)
  Sender: SANDOZ
  Company Number: US-SANDOZ-SDZ2025US002475

PATIENT
  Age: 26 Year
  Sex: Female

DRUGS (2)
  1. CEFTRIAXONE [Suspect]
     Active Substance: CEFTRIAXONE
     Indication: Streptococcal bacteraemia
     Route: 042
  2. CEFTRIAXONE [Suspect]
     Active Substance: CEFTRIAXONE
     Indication: Prosthetic valve endocarditis

REACTIONS (3)
  - Pancreatitis acute [Recovering/Resolving]
  - Thrombophlebitis septic [Recovering/Resolving]
  - Splenic infarction [Recovering/Resolving]
